FAERS Safety Report 6348492-5 (Version None)
Quarter: 2009Q3

REPORT INFORMATION
  Report Type: 
  Country: None (occurrence: None)
  Receive Date: 20090911
  Receipt Date: 20070517
  Transmission Date: 20100115
  Serious: Yes (Death, Hospitalization)
  Sender: FDA-Public Use
  Company Number: US-ASTRAZENECA-2006UW25759

PATIENT
  Age: 504 Month
  Sex: Male
  Weight: 126.1 kg

DRUGS (19)
  1. SEROQUEL [Suspect]
     Indication: SCHIZOPHRENIA
     Dosage: 100 MG
     Route: 048
     Dates: start: 20021201, end: 20030901
  2. SEROQUEL [Suspect]
     Dosage: 200 MG AT MORNING AND 300 MG AT NIGHT
     Route: 048
     Dates: start: 20030123
  3. SEROQUEL [Suspect]
     Dosage: REDUCE 50 MG NOON AND 100 MG AT NIGHT FOR ONE WEEK
     Route: 048
     Dates: start: 20030902
  4. RISPERDAL [Concomitant]
     Dates: end: 20000101
  5. ABILIFY [Concomitant]
  6. LEVOTHYROXINE SODIUM [Concomitant]
     Indication: THYROID DISORDER
     Dosage: 0.125 MG-0.15 MG
     Route: 048
     Dates: start: 20041119
  7. METFORMIN HCL [Concomitant]
     Indication: DIABETES MELLITUS
     Dosage: 500 MG-2000 MG
     Route: 048
     Dates: start: 20041119
  8. LOVASTATIN [Concomitant]
     Indication: BLOOD CHOLESTEROL
     Dosage: 40-80 MG
     Route: 048
     Dates: start: 20041119
  9. NPH ILETIN II [Concomitant]
     Indication: DIABETES MELLITUS
     Dosage: 50 UNITS IN TWO TIMES
     Route: 058
     Dates: start: 20040201
  10. OMEPRAZOLE [Concomitant]
     Indication: HYPERCHLORHYDRIA
     Route: 048
     Dates: start: 20050816
  11. ZYPREXA [Concomitant]
     Dosage: 5 MG-10 MG
     Dates: start: 20030902
  12. ZYPREXA [Concomitant]
     Dates: end: 20030101
  13. ASPIRIN [Concomitant]
     Indication: CARDIAC DISORDER
     Route: 048
     Dates: start: 20030201
  14. ARIPIPRAZOLE [Concomitant]
     Indication: PSYCHOTIC DISORDER
     Dosage: 20 MG-30 MG
     Route: 048
     Dates: start: 20050816
  15. FLUOXETINE [Concomitant]
     Route: 048
     Dates: start: 20060126
  16. HALDOL [Concomitant]
     Dates: start: 19810101, end: 20000101
  17. HALDOL [Concomitant]
     Dosage: 2 MG-5 MG
     Dates: start: 19851205
  18. TRILAFON [Concomitant]
     Dosage: 4 MG-12 MG
     Dates: start: 19970609
  19. TRILAFON [Concomitant]
     Dates: end: 20000101

REACTIONS (6)
  - DEATH [None]
  - DIABETES MELLITUS [None]
  - HEAD INJURY [None]
  - INSULIN-REQUIRING TYPE 2 DIABETES MELLITUS [None]
  - TYPE 1 DIABETES MELLITUS [None]
  - TYPE 2 DIABETES MELLITUS [None]
